FAERS Safety Report 14564981 (Version 1)
Quarter: 2018Q1

REPORT INFORMATION
  Report Type: Spontaneous
  Country: JP (occurrence: JP)
  Receive Date: 20180223
  Receipt Date: 20180223
  Transmission Date: 20180509
  Serious: Yes (Hospitalization)
  Sender: FDA-Public Use
  Company Number: JP-AMGEN-JPNSP2018025026

PATIENT
  Age: 97 Year
  Sex: Female

DRUGS (2)
  1. PRALIA [Suspect]
     Active Substance: DENOSUMAB
     Indication: PRODUCT USED FOR UNKNOWN INDICATION
     Dosage: 60 MG, ONCE
     Route: 065
  2. ONEALFA [Concomitant]
     Active Substance: ALFACALCIDOL
     Dosage: UNK
     Route: 065

REACTIONS (1)
  - Tremor [Not Recovered/Not Resolved]
